FAERS Safety Report 8985928 (Version 4)
Quarter: 2014Q2

REPORT INFORMATION
  Report Type: Spontaneous
  Country: US (occurrence: US)
  Receive Date: 20121226
  Receipt Date: 20140603
  Transmission Date: 20141212
  Serious: Yes (Other)
  Sender: FDA-Public Use
  Company Number: US-PFIZER INC-2012326054

PATIENT
  Sex: Female

DRUGS (1)
  1. LYRICA [Suspect]
     Dosage: UNK

REACTIONS (6)
  - Throat lesion [Unknown]
  - Limb discomfort [Unknown]
  - Arthritis [Unknown]
  - Fibromyalgia [Unknown]
  - Limb injury [Unknown]
  - Tooth extraction [Unknown]
